FAERS Safety Report 4945729-1 (Version None)
Quarter: 2006Q1

REPORT INFORMATION
  Report Type: 
  Country: None (occurrence: None)
  Receive Date: 20060117
  Receipt Date: 20050412
  Transmission Date: 20060701
  Serious: Yes (Other)
  Sender: FDA-Public Use
  Company Number: A03200501058

PATIENT
  Sex: Female

DRUGS (6)
  1. PLAVIX [Suspect]
     Indication: ANGIOPLASTY
     Dosage: ORAL
     Route: 048
     Dates: start: 20040501
  2. VALSARTAN [Concomitant]
  3. FENOFIBRATE [Concomitant]
  4. ISOSORBIDE MONONITRATE [Concomitant]
  5. VITAMINS [Concomitant]
  6. CALCIUM GLUCONATE [Concomitant]

REACTIONS (1)
  - HAEMORRHAGE [None]
